FAERS Safety Report 7485031-X (Version None)
Quarter: 2011Q2

REPORT INFORMATION
  Report Type: 
  Country: None (occurrence: None)
  Receive Date: 20110517
  Receipt Date: 20101022
  Transmission Date: 20111010
  Serious: No
  Sender: FDA-Public Use
  Company Number: US-BAYER-201022559BCC

PATIENT
  Sex: Female

DRUGS (5)
  1. TYLENOL (CAPLET) [Concomitant]
     Indication: ARTHRALGIA
  2. TRAMADOL HYDROCHLORIDE [Concomitant]
     Indication: ARTHRALGIA
  3. NAPROXEN (ALEVE) [Suspect]
     Indication: ARTHRALGIA
  4. MOTRIN [Concomitant]
     Indication: ARTHRALGIA
  5. IBUPROFEN (ADVIL) [Concomitant]
     Indication: ARTHRALGIA

REACTIONS (1)
  - ARTHRALGIA [None]
